FAERS Safety Report 9847144 (Version 2)
Quarter: 2014Q1

REPORT INFORMATION
  Report Type: Spontaneous
  Country: US (occurrence: US)
  Receive Date: 20140127
  Receipt Date: 20140127
  Transmission Date: 20141002
  Serious: Yes (Hospitalization, Disabling, Other)
  Sender: FDA-Public Use
  Company Number: US-009507513-95111655

PATIENT
  Sex: Female
  Weight: 72.58 kg

DRUGS (7)
  1. FOSAMAX [Suspect]
     Indication: OSTEOPOROSIS
     Dosage: 10 MG, QD
     Route: 048
     Dates: start: 1995, end: 2003
  2. FOSAMAX [Suspect]
     Dosage: 70 MG, QW
     Route: 048
     Dates: end: 20091111
  3. SYNTHROID [Concomitant]
     Indication: HYPOTHYROIDISM
  4. SYNTHROID [Concomitant]
     Dosage: 0.175 MG, QD
  5. TENORMIN [Concomitant]
     Indication: HYPERTENSION
     Dosage: 100 MG, QD
     Dates: start: 1980
  6. FOSAMAX PLUS D [Suspect]
     Indication: OSTEOPOROSIS
     Dosage: UNK UNK, QW
     Route: 048
     Dates: end: 2006
  7. EVISTA [Concomitant]
     Dosage: 60 MG, QD

REACTIONS (23)
  - Femur fracture [Recovered/Resolved]
  - Haemorrhagic anaemia [Unknown]
  - Fall [Unknown]
  - Thyroid disorder [Unknown]
  - Joint dislocation [Recovered/Resolved]
  - Tibia fracture [Unknown]
  - Ankle fracture [Unknown]
  - Breast tenderness [Recovered/Resolved]
  - Urinary incontinence [Unknown]
  - Fracture delayed union [Recovered/Resolved]
  - Vitamin D deficiency [Unknown]
  - Hiatus hernia [Unknown]
  - Hyperlipidaemia [Unknown]
  - Hypercalcaemia [Unknown]
  - Osteoarthritis [Unknown]
  - Intestinal polyp [Unknown]
  - Purulent discharge [Unknown]
  - Injury associated with device [Unknown]
  - Oedema peripheral [Unknown]
  - Oedema peripheral [Unknown]
  - Pain in extremity [Unknown]
  - Erythema [Unknown]
  - Erosive oesophagitis [Unknown]
